FAERS Safety Report 5610728-3 (Version None)
Quarter: 2008Q1

REPORT INFORMATION
  Report Type: 
  Country: None (occurrence: None)
  Receive Date: 20080201
  Receipt Date: 20080123
  Transmission Date: 20080703
  Serious: Yes (Other)
  Sender: FDA-Public Use
  Company Number: PHBS2008US01350

PATIENT
  Age: 67 Year
  Sex: Male

DRUGS (3)
  1. PAMIDRONATE DISODIUM [Suspect]
     Indication: PROSTATE CANCER
     Dosage: 90 MG ONCE/MONTH
     Route: 042
  2. STEROIDS NOS [Concomitant]
     Indication: ADRENAL INSUFFICIENCY
  3. ANTINEOPLASTIC AGENTS [Concomitant]

REACTIONS (4)
  - BONE DEBRIDEMENT [None]
  - OSTEONECROSIS [None]
  - SEQUESTRECTOMY [None]
  - TOOTH EXTRACTION [None]
